FAERS Safety Report 5612281-7 (Version None)
Quarter: 2008Q1

REPORT INFORMATION
  Report Type: 
  Country: None (occurrence: None)
  Receive Date: 20080204
  Receipt Date: 20080201
  Transmission Date: 20080703
  Serious: Yes (Other)
  Sender: FDA-Public Use
  Company Number: A0700903A

PATIENT
  Age: 37 Year
  Sex: Female

DRUGS (2)
  1. ALLI [Suspect]
     Indication: WEIGHT LOSS DIET
     Route: 048
     Dates: start: 20070101, end: 20070101
  2. MULTI-VITAMIN [Concomitant]

REACTIONS (7)
  - ANAL HAEMORRHAGE [None]
  - COLITIS [None]
  - DEFAECATION URGENCY [None]
  - DIARRHOEA [None]
  - HAEMATOCHEZIA [None]
  - RECTAL DISCHARGE [None]
  - RECTAL HAEMORRHAGE [None]
